FAERS Safety Report 6192038-1 (Version None)
Quarter: 2009Q2

REPORT INFORMATION
  Report Type: 
  Country: None (occurrence: None)
  Receive Date: 20090515
  Receipt Date: 20090506
  Transmission Date: 20091009
  Serious: Yes (Other)
  Sender: FDA-Public Use
  Company Number: FR-MERCK-0905FRA00021

PATIENT
  Age: 55 Year
  Sex: Male

DRUGS (6)
  1. JANUVIA [Suspect]
     Indication: DIABETES MELLITUS
     Route: 048
     Dates: start: 20081110, end: 20081207
  2. METFORMIN [Concomitant]
     Route: 065
  3. AMLODIPINE BESYLATE [Concomitant]
     Route: 065
  4. CELIPROLOL HYDROCHLORIDE [Concomitant]
     Route: 065
  5. ASPIRIN [Concomitant]
     Route: 065
  6. ATORVASTATIN CALCIUM [Concomitant]
     Route: 065

REACTIONS (2)
  - AFFECTIVE DISORDER [None]
  - AGGRESSION [None]
